FAERS Safety Report 10967045 (Version 2)
Quarter: 2015Q1

REPORT INFORMATION
  Report Type: Spontaneous
  Country: CA (occurrence: CA)
  Receive Date: 20150330
  Receipt Date: 20150330
  Transmission Date: 20150721
  Serious: Yes (Other)
  Sender: FDA-Public Use
  Company Number: ALCN2015CA001907

PATIENT
  Sex: Male

DRUGS (1)
  1. VITALUX AREDS [Suspect]
     Active Substance: MINERALS\VITAMINS
     Dosage: 2 DF, QD
     Route: 048

REACTIONS (5)
  - Choking [Recovered/Resolved]
  - Oesophageal obstruction [Recovered/Resolved]
  - Wrong technique in drug usage process [Recovered/Resolved]
  - Product physical issue [Recovered/Resolved]
  - Cough [Recovered/Resolved]
